FAERS Safety Report 18136229 (Version 5)
Quarter: 2021Q2

REPORT INFORMATION
  Report Type: Report from Study
  Country: FR (occurrence: FR)
  Receive Date: 20200811
  Receipt Date: 20210427
  Transmission Date: 20210717
  Serious: Yes (Other)
  Sender: FDA-Public Use
  Company Number: FR-JNJFOC-20200747529

PATIENT
  Age: 50 Year
  Sex: Female
  Weight: 56 kg

DRUGS (12)
  1. DIAZEPAM. [Concomitant]
     Active Substance: DIAZEPAM
     Dates: start: 20200605
  2. MIRTAZAPINE. [Concomitant]
     Active Substance: MIRTAZAPINE
     Indication: DEPRESSION
     Dates: start: 20130101
  3. VORTIOXETINE. [Concomitant]
     Active Substance: VORTIOXETINE
     Dates: start: 20200511, end: 20200513
  4. SPRAVATO [Suspect]
     Active Substance: ESKETAMINE
     Dates: start: 20200518, end: 20200518
  5. VORTIOXETINE. [Concomitant]
     Active Substance: VORTIOXETINE
     Indication: DEPRESSION
     Dates: start: 20200528
  6. DULOXETINE. [Concomitant]
     Active Substance: DULOXETINE
     Dates: start: 20200518, end: 20200524
  7. LAMOTRIGINE. [Concomitant]
     Active Substance: LAMOTRIGINE
     Indication: EPILEPSY
     Dates: start: 20180101
  8. LORAZEPAM. [Concomitant]
     Active Substance: LORAZEPAM
     Dosage: 1.25
     Dates: start: 20180501
  9. SPRAVATO [Suspect]
     Active Substance: ESKETAMINE
     Indication: DEPRESSION
     Dates: start: 20200511, end: 20200625
  10. VORTIOXETINE. [Concomitant]
     Active Substance: VORTIOXETINE
     Dates: start: 20200514, end: 20200520
  11. VORTIOXETINE. [Concomitant]
     Active Substance: VORTIOXETINE
     Dates: start: 20200521, end: 20200527
  12. DULOXETINE. [Concomitant]
     Active Substance: DULOXETINE
     Indication: DEPRESSION
     Dates: start: 20200511, end: 20200517

REACTIONS (6)
  - Hallucination [Recovered/Resolved]
  - Patient dissatisfaction with treatment [Recovered/Resolved]
  - Hypoaesthesia [Recovered/Resolved]
  - Illusion [Recovered/Resolved]
  - Sedation [Recovered/Resolved]
  - Dissociation [Recovered/Resolved]

NARRATIVE: CASE EVENT DATE: 20200511
